FAERS Safety Report 4976262-9 (Version None)
Quarter: 2006Q2

REPORT INFORMATION
  Report Type: 
  Country: None (occurrence: None)
  Receive Date: 20060419
  Receipt Date: 20060407
  Transmission Date: 20061013
  Serious: Yes (Hospitalization)
  Sender: FDA-Public Use
  Company Number: FR-BRISTOL-MYERS SQUIBB COMPANY-13343215

PATIENT
  Age: 76 Year
  Sex: Female

DRUGS (8)
  1. VASTEN TABS [Suspect]
     Indication: HYPERCHOLESTEROLAEMIA
     Route: 048
     Dates: end: 20060220
  2. KENZEN [Concomitant]
     Route: 048
  3. CELEBREX [Concomitant]
     Route: 048
  4. SINTROM [Concomitant]
     Route: 048
  5. LASILIX [Concomitant]
     Route: 048
  6. SOTALOL HCL [Concomitant]
     Route: 048
  7. NEXIUM [Concomitant]
  8. PYOSTACINE [Concomitant]
     Indication: ERYSIPELAS

REACTIONS (6)
  - ALANINE AMINOTRANSFERASE INCREASED [None]
  - ASPARTATE AMINOTRANSFERASE INCREASED [None]
  - BLOOD ALKALINE PHOSPHATASE INCREASED [None]
  - CYTOLYTIC HEPATITIS [None]
  - ERYSIPELAS [None]
  - GAMMA-GLUTAMYLTRANSFERASE INCREASED [None]
